FAERS Safety Report 16919781 (Version 1)
Quarter: 2019Q4

REPORT INFORMATION
  Report Type: Spontaneous
  Country: US (occurrence: US)
  Receive Date: 20191015
  Receipt Date: 20191015
  Transmission Date: 20200122
  Serious: Yes (Hospitalization)
  Sender: FDA-Public Use
  Company Number: None

PATIENT
  Age: 100 Year
  Sex: Female

DRUGS (9)
  1. CLONIDINE 0.1 MG TABS [Concomitant]
  2. FUROSEMIDE 20MG [Concomitant]
     Active Substance: FUROSEMIDE
  3. HYDRALAZINE 100MG TABS [Concomitant]
  4. LORAZEPAM 0.5MG [Concomitant]
     Active Substance: LORAZEPAM
  5. PANTOPRAZOLE 40MG [Concomitant]
     Active Substance: PANTOPRAZOLE SODIUM
  6. TELMISARTAN 80MG [Concomitant]
  7. SAMSCA [Suspect]
     Active Substance: TOLVAPTAN
     Indication: HYPONATRAEMIA
     Route: 048
  8. SYMBICORT 160/4.5 MG MDI [Concomitant]
  9. GENERLAC 10GM/15ML [Concomitant]

REACTIONS (1)
  - Cardiac failure [None]

NARRATIVE: CASE EVENT DATE: 20191015
